FAERS Safety Report 10683573 (Version 8)
Quarter: 2015Q2

REPORT INFORMATION
  Report Type: Spontaneous
  Country: US (occurrence: US)
  Receive Date: 20141230
  Receipt Date: 20150624
  Transmission Date: 20150821
  Serious: Yes (Death, Hospitalization, Other)
  Sender: FDA-Public Use
  Company Number: US-GLAXOSMITHKLINE-A1085283A

PATIENT
  Age: 73 Year
  Sex: Male

DRUGS (7)
  1. FLOLAN [Suspect]
     Active Substance: EPOPROSTENOL SODIUM
     Dosage: 16.7 UNK, UNK
  2. COUMADIN [Concomitant]
     Active Substance: WARFARIN SODIUM
  3. FLOLAN [Suspect]
     Active Substance: EPOPROSTENOL SODIUM
     Dosage: 16.7 NG/KG/MIN CONTINUOUS; CONCENTRATION: 30,000 NG/ML; PUMP RATE: 62 ML/DAY; VIAL STRENGTH: 1.5 MG
     Dates: start: 20140529
  4. FLOLAN [Suspect]
     Active Substance: EPOPROSTENOL SODIUM
     Indication: PULMONARY ARTERIAL HYPERTENSION
     Dosage: DOSE: 16.7 NG/KG/MIN, CONC. 30,000 NG/ML, PUMP RATE NOT REPORTED, VIAL STRENGTH 1.5 MG
     Route: 042
     Dates: start: 20140522
  5. FLOLAN [Suspect]
     Active Substance: EPOPROSTENOL SODIUM
     Dosage: 16.7 NG/KG/MIN CONTINUOUS
     Dates: end: 20150513
  6. REVATIO [Concomitant]
     Active Substance: SILDENAFIL CITRATE
  7. FLOLAN [Suspect]
     Active Substance: EPOPROSTENOL SODIUM
     Dosage: 16.7 NG/KG/MIN, CONCENTRATION 30,000 NG/ML, PUMP RATE 62 ML/DAY, VIAL STRENGTH 1.5 MG, CO
     Route: 042

REACTIONS (9)
  - Pulmonary hypertension [Fatal]
  - Skin atrophy [Not Recovered/Not Resolved]
  - Hospitalisation [Unknown]
  - Wound haemorrhage [Unknown]
  - Dyspnoea [Unknown]
  - Condition aggravated [Unknown]
  - Infusion site haemorrhage [Unknown]
  - Nausea [Unknown]
  - Medical device complication [Unknown]

NARRATIVE: CASE EVENT DATE: 20150505
